FAERS Safety Report 15523724 (Version 2)
Quarter: 2018Q4

REPORT INFORMATION
  Report Type: Report from Study
  Country: US (occurrence: US)
  Receive Date: 20181018
  Receipt Date: 20181210
  Transmission Date: 20190205
  Serious: Yes (Other)
  Sender: FDA-Public Use
  Company Number: US-ROCHE-2197481

PATIENT
  Age: 62 Year
  Sex: Female
  Weight: 65.7 kg

DRUGS (6)
  1. ATEZOLIZUMAB. [Suspect]
     Active Substance: ATEZOLIZUMAB
     Route: 042
     Dates: start: 20180509
  2. CARBOPLATIN. [Suspect]
     Active Substance: CARBOPLATIN
     Route: 042
     Dates: start: 20180509
  3. ATEZOLIZUMAB. [Suspect]
     Active Substance: ATEZOLIZUMAB
     Indication: INVASIVE BREAST CARCINOMA
     Dosage: ON 15/JUN/2018, SHE RECEIVED THE MOST RECENT DOSE OF ATEZOLIZUMAB.
     Route: 042
     Dates: start: 20180411
  4. CARBOPLATIN. [Suspect]
     Active Substance: CARBOPLATIN
     Indication: INVASIVE BREAST CARCINOMA
     Dosage: ON 15/JUN/2018, SHE RECEIVED THE MOST RECENT DOSE OF CARBOPLATIN.
     Route: 042
     Dates: start: 20180411
  5. PACLITAXEL. [Suspect]
     Active Substance: PACLITAXEL
     Indication: INVASIVE BREAST CARCINOMA
     Dosage: ON 15/JUN/2018, SHE RECEIVED THE MOST RECENT DOSE OF PACLITAXIL.
     Route: 042
     Dates: start: 20180411
  6. PACLITAXEL. [Suspect]
     Active Substance: PACLITAXEL
     Route: 042
     Dates: start: 20180509

REACTIONS (2)
  - Neutrophil count decreased [Unknown]
  - Anaemia [Unknown]
